FAERS Safety Report 13679895 (Version 1)
Quarter: 2017Q2

REPORT INFORMATION
  Report Type: Spontaneous
  Country: US (occurrence: US)
  Receive Date: 20170622
  Receipt Date: 20170622
  Transmission Date: 20170830
  Serious: No
  Sender: FDA-Public Use
  Company Number: US-BAYER-2017-120625

PATIENT
  Age: 78 Year
  Sex: Female

DRUGS (1)
  1. CIPRO [Suspect]
     Active Substance: CIPROFLOXACIN HYDROCHLORIDE
     Indication: URINARY TRACT INFECTION
     Dosage: 250 MG, ONCE
     Route: 048
     Dates: start: 201706

REACTIONS (2)
  - Intentional product use issue [None]
  - Skin exfoliation [Unknown]

NARRATIVE: CASE EVENT DATE: 201706
